FAERS Safety Report 9580229 (Version 4)
Quarter: 2013Q4

REPORT INFORMATION
  Report Type: Spontaneous
  Country: US (occurrence: US)
  Receive Date: 20131002
  Receipt Date: 20131203
  Transmission Date: 20140711
  Serious: Yes (Hospitalization, Other)
  Sender: FDA-Public Use
  Company Number: US-009507513-1203USA00024

PATIENT
  Sex: Female
  Weight: 74.38 kg

DRUGS (4)
  1. FOSAMAX [Suspect]
     Indication: OSTEOPOROSIS
     Dosage: 70 MG, QW
     Route: 048
     Dates: start: 1995, end: 201102
  2. ALENDRONATE SODIUM [Suspect]
     Indication: OSTEOPOROSIS
     Dosage: 70 MG, QW
     Route: 048
  3. VITAMINS (UNSPECIFIED) [Concomitant]
     Dosage: UNK, QD
     Dates: start: 1991, end: 2012
  4. CALCIUM (UNSPECIFIED) (+) VITAMIN D (UNSPECIFIED) [Concomitant]
     Dosage: UNK, QD
     Dates: start: 1991, end: 2012

REACTIONS (27)
  - Femur fracture [Unknown]
  - Intramedullary rod insertion [Unknown]
  - Immune thrombocytopenic purpura [Unknown]
  - Cholecystectomy [Unknown]
  - Low turnover osteopathy [Unknown]
  - Hypertension [Unknown]
  - Dyslipidaemia [Unknown]
  - Bundle branch block left [Not Recovered/Not Resolved]
  - Bladder neck suspension [Unknown]
  - Rectocele repair [Unknown]
  - Arthritis [Unknown]
  - Pelvic fracture [Recovered/Resolved]
  - Coronary artery disease [Unknown]
  - Catheterisation cardiac [Unknown]
  - Varicose vein [Unknown]
  - Anaemia [Unknown]
  - Gingival operation [Unknown]
  - Anaemia [Unknown]
  - Liver function test abnormal [Recovering/Resolving]
  - Hypokalaemia [Recovered/Resolved]
  - Osteoarthritis [Unknown]
  - Osteoarthritis [Unknown]
  - Local swelling [Unknown]
  - Post procedural constipation [Unknown]
  - Drug ineffective [Unknown]
  - Pain in extremity [Unknown]
  - Arthralgia [Unknown]
